FAERS Safety Report 23875941 (Version 5)
Quarter: 2024Q4

REPORT INFORMATION
  Report Type: Spontaneous
  Country: US (occurrence: US)
  Receive Date: 20240520
  Receipt Date: 20241110
  Transmission Date: 20250115
  Serious: No
  Sender: SANOFI AVENTIS
  Company Number: US-SA-SAC20240517001030

PATIENT
  Sex: Female
  Weight: 81.64 kg

DRUGS (63)
  1. DUPIXENT [Suspect]
     Active Substance: DUPILUMAB
     Indication: Asthma
     Dosage: 300 MG, QOW
     Route: 058
  2. DUPIXENT [Suspect]
     Active Substance: DUPILUMAB
     Indication: Immunodeficiency common variable
  3. HUMAN IMMUNOGLOBULIN G [Suspect]
     Active Substance: HUMAN IMMUNOGLOBULIN G
     Dosage: UNK
     Route: 058
  4. LIDOCAINE [Concomitant]
     Active Substance: LIDOCAINE
  5. CYANOCOBALAMIN [Concomitant]
     Active Substance: CYANOCOBALAMIN
  6. ACETAMINOPHEN [Concomitant]
     Active Substance: ACETAMINOPHEN
  7. DIPHENHYDRAMINE HYDROCHLORIDE [Concomitant]
     Active Substance: DIPHENHYDRAMINE HYDROCHLORIDE
  8. LIDOCAINE [Concomitant]
     Active Substance: LIDOCAINE
  9. CUVITRU [Concomitant]
     Active Substance: HUMAN IMMUNOGLOBULIN G
     Dosage: UNK
  10. ADVAIR HFA [Concomitant]
     Active Substance: FLUTICASONE PROPIONATE\SALMETEROL XINAFOATE
  11. VITAMIN C [Concomitant]
     Active Substance: ASCORBIC ACID
  12. KRILL OIL [Concomitant]
     Active Substance: DIETARY SUPPLEMENT\KRILL OIL
  13. .ALPHA.-TOCOPHEROL [Concomitant]
     Active Substance: .ALPHA.-TOCOPHEROL
  14. TORSEMIDE [Concomitant]
     Active Substance: TORSEMIDE
  15. METHOCARBAMOL [Concomitant]
     Active Substance: METHOCARBAMOL
  16. LIDOCAINE [Concomitant]
     Active Substance: LIDOCAINE
  17. BENADRYL [Concomitant]
     Active Substance: DIPHENHYDRAMINE HYDROCHLORIDE
  18. ELIQUIS [Concomitant]
     Active Substance: APIXABAN
  19. FENOFIBRATE [Concomitant]
     Active Substance: FENOFIBRATE
  20. ATIVAN [Concomitant]
     Active Substance: LORAZEPAM
  21. CRESTOR [Concomitant]
     Active Substance: ROSUVASTATIN CALCIUM
  22. ACETAMINOPHEN\HYDROCODONE [Concomitant]
     Active Substance: ACETAMINOPHEN\HYDROCODONE
  23. POTASSIUM CHLORIDE [Concomitant]
     Active Substance: POTASSIUM CHLORIDE
  24. SERTRALINE HYDROCHLORIDE [Concomitant]
     Active Substance: SERTRALINE HYDROCHLORIDE
  25. SPIRIVA RESPIMAT [Concomitant]
     Active Substance: TIOTROPIUM BROMIDE
  26. METFORMIN [Concomitant]
     Active Substance: METFORMIN HYDROCHLORIDE
  27. ZOFRAN [Concomitant]
     Active Substance: ONDANSETRON HYDROCHLORIDE
  28. KETOCONAZOLE [Concomitant]
     Active Substance: KETOCONAZOLE
  29. MAGNESIUM OXIDE [Concomitant]
     Active Substance: MAGNESIUM OXIDE
  30. EMGALITY [Concomitant]
     Active Substance: GALCANEZUMAB-GNLM
  31. PREDNISONE [Concomitant]
     Active Substance: PREDNISONE
  32. FLUDROCORTISONE ACETATE [Concomitant]
     Active Substance: FLUDROCORTISONE ACETATE
  33. ZYRTEC [Concomitant]
     Active Substance: CETIRIZINE HYDROCHLORIDE
  34. BENZONATATE [Concomitant]
     Active Substance: BENZONATATE
  35. VITAMIN D3 [Concomitant]
     Active Substance: CHOLECALCIFEROL
  36. DILTIAZEM HYDROCHLORIDE [Concomitant]
     Active Substance: DILTIAZEM HYDROCHLORIDE
  37. SINGULAIR [Concomitant]
     Active Substance: MONTELUKAST SODIUM
  38. FAMOTIDINE [Concomitant]
     Active Substance: FAMOTIDINE
  39. MIDODRINE HYDROCHLORIDE [Concomitant]
     Active Substance: MIDODRINE HYDROCHLORIDE
  40. ALBUTEROL SULFATE [Concomitant]
     Active Substance: ALBUTEROL SULFATE
  41. FIORICET [Concomitant]
     Active Substance: ACETAMINOPHEN\BUTALBITAL\CAFFEINE
  42. PROAIR HFA [Concomitant]
     Active Substance: ALBUTEROL SULFATE
  43. SELENIUM [Concomitant]
     Active Substance: SELENIUM
     Dosage: UNK
  44. BACLOFEN [Concomitant]
     Active Substance: BACLOFEN
     Dosage: UNK
  45. MAGNESIUM [Concomitant]
     Active Substance: MAGNESIUM
     Dosage: UNK
  46. METFORMIN HYDROCHLORIDE [Concomitant]
     Active Substance: METFORMIN HYDROCHLORIDE
  47. BACLOFEN [Concomitant]
     Active Substance: BACLOFEN
  48. LINZESS [Concomitant]
     Active Substance: LINACLOTIDE
  49. HYDROCODONE BITARTRATE AND ACETAMINOPHEN [Concomitant]
     Active Substance: ACETAMINOPHEN\HYDROCODONE BITARTRATE
  50. PREDNISONE [Concomitant]
     Active Substance: PREDNISONE
  51. MAGNESIUM [Concomitant]
     Active Substance: MAGNESIUM
  52. ZOFRAN [Concomitant]
     Active Substance: ONDANSETRON HYDROCHLORIDE
  53. B12 ACTIVE [Concomitant]
  54. EMGALITY [Concomitant]
     Active Substance: GALCANEZUMAB-GNLM
  55. Beet root [Concomitant]
  56. MOVANTIK [Concomitant]
     Active Substance: NALOXEGOL OXALATE
  57. SELENIUM [Concomitant]
     Active Substance: SELENIUM
  58. ZYRTEC [Concomitant]
     Active Substance: CETIRIZINE HYDROCHLORIDE
  59. FENOBIBRATE [Concomitant]
     Active Substance: FENOFIBRATE
  60. Krill boost [Concomitant]
  61. VITAMIN C [Concomitant]
     Active Substance: ASCORBIC ACID
  62. KETOCONAZOLE [Concomitant]
     Active Substance: KETOCONAZOLE
  63. VITAMIN E [Concomitant]
     Active Substance: .ALPHA.-TOCOPHEROL

REACTIONS (8)
  - Anaemia [Unknown]
  - Bronchitis [Unknown]
  - Infusion site pain [Unknown]
  - Infusion site swelling [Unknown]
  - Sensitive skin [Unknown]
  - Infection [Unknown]
  - Drug hypersensitivity [Unknown]
  - Product use in unapproved indication [Unknown]
